FAERS Safety Report 21817923 (Version 1)
Quarter: 2023Q1

REPORT INFORMATION
  Report Type: Spontaneous
  Country: US (occurrence: US)
  Receive Date: 20230104
  Receipt Date: 20230104
  Transmission Date: 20230418
  Serious: Yes (Other)
  Sender: FDA-Public Use
  Company Number: US-COOPERSURGICAL, INC.-US-2021CPS003625

PATIENT
  Age: 29 Year
  Sex: Female
  Weight: 53.061 kg

DRUGS (2)
  1. PARAGARD T 380A [Suspect]
     Active Substance: COPPER
     Indication: Contraception
     Dosage: UNK
     Route: 015
     Dates: start: 2013
  2. SPIRONOLACTONE [Concomitant]
     Active Substance: SPIRONOLACTONE
     Indication: Polycystic ovaries
     Dosage: UNK
     Route: 065

REACTIONS (8)
  - Device breakage [Not Recovered/Not Resolved]
  - Complication of device removal [Not Recovered/Not Resolved]
  - Foreign body in reproductive tract [Not Recovered/Not Resolved]
  - Embedded device [Not Recovered/Not Resolved]
  - Bacterial vaginosis [Unknown]
  - Fungal infection [Unknown]
  - Dyspareunia [Unknown]
  - Device expulsion [Recovered/Resolved]

NARRATIVE: CASE EVENT DATE: 20211001
